FAERS Safety Report 11195803 (Version 4)
Quarter: 2016Q1

REPORT INFORMATION
  Report Type: Report from Study
  Country: US (occurrence: US)
  Receive Date: 20150617
  Receipt Date: 20160311
  Transmission Date: 20160525
  Serious: Yes (Other)
  Sender: FDA-Public Use
  Company Number: US-SA-2015SA025711

PATIENT
  Age: 48 Year
  Sex: Female

DRUGS (6)
  1. LEMTRADA [Suspect]
     Active Substance: ALEMTUZUMAB
     Indication: MULTIPLE SCLEROSIS
     Route: 041
     Dates: start: 20160222, end: 20160224
  2. ZANTAC [Concomitant]
     Active Substance: RANITIDINE HYDROCHLORIDE
     Indication: PROPHYLAXIS
  3. LEMTRADA [Suspect]
     Active Substance: ALEMTUZUMAB
     Indication: MULTIPLE SCLEROSIS
     Route: 042
     Dates: start: 20150202, end: 20150206
  4. ZYRTEC [Concomitant]
     Active Substance: CETIRIZINE HYDROCHLORIDE
     Indication: PROPHYLAXIS
  5. HEP-LOCK [Concomitant]
     Active Substance: HEPARIN SODIUM
  6. PREDNISONE. [Concomitant]
     Active Substance: PREDNISONE
     Indication: PROPHYLAXIS

REACTIONS (20)
  - Abasia [Unknown]
  - Visual impairment [Unknown]
  - Dizziness [Unknown]
  - Night blindness [Not Recovered/Not Resolved]
  - Paraesthesia oral [Unknown]
  - Fatigue [Unknown]
  - Oedema peripheral [Unknown]
  - Rhinorrhoea [Not Recovered/Not Resolved]
  - Alopecia [Unknown]
  - Hypoaesthesia oral [Unknown]
  - Headache [Unknown]
  - Hallucination [Recovered/Resolved]
  - Balance disorder [Unknown]
  - Nausea [Unknown]
  - Insomnia [Unknown]
  - Contusion [Unknown]
  - Asthenia [Unknown]
  - Ill-defined disorder [Not Recovered/Not Resolved]
  - Hypoaesthesia [Unknown]
  - Urinary tract infection [Unknown]

NARRATIVE: CASE EVENT DATE: 201502
